FAERS Safety Report 15898280 (Version 1)
Quarter: 2019Q1

REPORT INFORMATION
  Report Type: Report from Study
  Country: US (occurrence: US)
  Receive Date: 20190201
  Receipt Date: 20190201
  Transmission Date: 20190417
  Serious: Yes (Death, Other)
  Sender: FDA-Public Use
  Company Number: US-BRISTOL-MYERS SQUIBB COMPANY-BMS-2019-006506

PATIENT
  Age: 59 Year
  Sex: Male

DRUGS (1)
  1. NIVOLUMAB [Suspect]
     Active Substance: NIVOLUMAB
     Indication: PHARYNGEAL CANCER METASTATIC
     Dosage: 3 MG/KG, Q2WK
     Route: 065
     Dates: start: 201605, end: 201606

REACTIONS (1)
  - Disseminated tuberculosis [Fatal]
